FAERS Safety Report 11142677 (Version 1)
Quarter: 2015Q2

REPORT INFORMATION
  Report Type: Spontaneous
  Country: US (occurrence: US)
  Receive Date: 20150527
  Receipt Date: 20150527
  Transmission Date: 20150821
  Serious: No
  Sender: FDA-Public Use
  Company Number: US-GLAXOSMITHKLINE-US2015GSK071126

PATIENT

DRUGS (1)
  1. ALLI [Suspect]
     Active Substance: ORLISTAT
     Indication: PRODUCT USED FOR UNKNOWN INDICATION

REACTIONS (11)
  - Dyspnoea [Unknown]
  - Restlessness [Unknown]
  - Dyskinesia [Unknown]
  - Faeces pale [Unknown]
  - Formication [Unknown]
  - Tardive dyskinesia [Unknown]
  - Tremor [Unknown]
  - Activities of daily living impaired [Unknown]
  - Hepatic steatosis [Unknown]
  - Product quality issue [Unknown]
  - Chromaturia [Unknown]
